FAERS Safety Report 6925446-9 (Version None)
Quarter: 2010Q3

REPORT INFORMATION
  Report Type: 
  Country: None (occurrence: None)
  Receive Date: 20100816
  Receipt Date: 20100719
  Transmission Date: 20110219
  Serious: Yes (Death, Life-Threatening, Hospitalization, Other)
  Sender: FDA-Public Use
  Company Number: US-ROCHE-712316

PATIENT
  Sex: Male
  Weight: 61.7 kg

DRUGS (2)
  1. PEGINTERFERON ALFA-2A [Suspect]
     Indication: HEPATITIS C
     Dosage: FORM: PRE-FILLED SYRINGE (PFS)
     Route: 058
     Dates: start: 20100510, end: 20100622
  2. RIBAVIRIN [Suspect]
     Indication: HEPATITIS C
     Route: 048
     Dates: start: 20100503, end: 20100622

REACTIONS (9)
  - ACUTE RESPIRATORY DISTRESS SYNDROME [None]
  - CHOLELITHIASIS [None]
  - DEATH [None]
  - DEHYDRATION [None]
  - DYSSTASIA [None]
  - HEPATIC CIRRHOSIS [None]
  - PANCYTOPENIA [None]
  - PNEUMONIA [None]
  - PNEUMONITIS [None]
